FAERS Safety Report 10261795 (Version 2)
Quarter: 2014Q2

REPORT INFORMATION
  Report Type: Report from Study
  Country: US (occurrence: US)
  Receive Date: 20140626
  Receipt Date: 20140626
  Transmission Date: 20141212
  Serious: Yes (Hospitalization, Other)
  Sender: FDA-Public Use
  Company Number: US-ABBVIE-13P-163-1078013-00

PATIENT
  Age: 22 Year
  Sex: Female
  Weight: 52.21 kg

DRUGS (19)
  1. HUMIRA [Suspect]
     Indication: COLITIS ULCERATIVE
     Dates: start: 201204, end: 201207
  2. HUMIRA [Suspect]
     Dates: start: 201207, end: 201211
  3. SULFASALAZINE [Suspect]
     Indication: PRODUCT USED FOR UNKNOWN INDICATION
     Dates: end: 201207
  4. SULFASALAZINE [Suspect]
     Dates: start: 201207
  5. LIALDA [Suspect]
     Indication: COLITIS ULCERATIVE
     Dates: start: 201207, end: 201207
  6. UCERIS [Suspect]
     Indication: COLITIS ULCERATIVE
     Dates: start: 201303
  7. BACTRIM DS [Suspect]
     Indication: ANTIFUNGAL PROPHYLAXIS
     Dates: start: 20120730
  8. BACTRIM DS [Suspect]
     Dates: start: 20120831
  9. IRON [Concomitant]
     Indication: ANAEMIA
  10. IRON [Concomitant]
  11. 6-MP [Concomitant]
     Indication: COLITIS ULCERATIVE
     Dates: end: 20120730
  12. 6-MP [Concomitant]
     Dates: start: 20120730, end: 201305
  13. 6-MP [Concomitant]
     Dates: start: 201305
  14. OXYCONTIN [Concomitant]
     Indication: PRODUCT USED FOR UNKNOWN INDICATION
  15. GABAPENTIN [Concomitant]
     Indication: PRODUCT USED FOR UNKNOWN INDICATION
  16. NYSTATIN [Concomitant]
     Indication: PRODUCT USED FOR UNKNOWN INDICATION
  17. TYLENOL EXTRA STRENGTH [Concomitant]
     Indication: PRODUCT USED FOR UNKNOWN INDICATION
  18. VSL#3 [Concomitant]
     Indication: PROBIOTIC THERAPY
  19. PRENATAL VITAMINS [Concomitant]
     Indication: PRODUCT USED FOR UNKNOWN INDICATION
     Dates: start: 201207

REACTIONS (17)
  - Pyoderma gangrenosum [Recovering/Resolving]
  - Colitis ulcerative [Recovered/Resolved]
  - Therapeutic response decreased [Unknown]
  - Treatment noncompliance [Unknown]
  - Asthenia [Unknown]
  - Headache [Unknown]
  - Nausea [Unknown]
  - Anaemia [Unknown]
  - Stress [Unknown]
  - Eating disorder [Unknown]
  - Decreased appetite [Unknown]
  - Decreased appetite [Recovered/Resolved]
  - Rectal tenesmus [Unknown]
  - Weight decreased [Recovered/Resolved]
  - Pyrexia [Recovered/Resolved]
  - Rash [Recovered/Resolved]
  - Adrenal insufficiency [Unknown]
